FAERS Safety Report 7747604-6 (Version None)
Quarter: 2011Q3

REPORT INFORMATION
  Report Type: 
  Country: None (occurrence: None)
  Receive Date: 20110913
  Receipt Date: 20110108
  Transmission Date: 20111222
  Serious: No
  Sender: FDA-Public Use
  Company Number: US-BAYER-201028122NA

PATIENT
  Age: 20 Year
  Sex: Female

DRUGS (1)
  1. MIRENA [Suspect]
     Indication: CONTRACEPTION
     Dosage: FREQUENCY: CONTINUOUS
     Route: 015
     Dates: start: 20100201

REACTIONS (9)
  - FATIGUE [None]
  - ABDOMINAL PAIN [None]
  - VAGINAL DISCHARGE [None]
  - CRYING [None]
  - NAUSEA [None]
  - APHAGIA [None]
  - MENOMETRORRHAGIA [None]
  - DEVICE ISSUE [None]
  - INSOMNIA [None]
